FAERS Safety Report 20877824 (Version 1)
Quarter: 2022Q2

REPORT INFORMATION
  Report Type: Spontaneous
  Country: US (occurrence: US)
  Receive Date: 20220526
  Receipt Date: 20220526
  Transmission Date: 20220720
  Serious: No
  Sender: FDA-Public Use
  Company Number: US-PFIZER INC-202200742905

PATIENT
  Age: 78 Year
  Sex: Male
  Weight: 73.48 kg

DRUGS (2)
  1. PAXLOVID [Suspect]
     Active Substance: NIRMATRELVIR\RITONAVIR
     Indication: COVID-19 treatment
     Dosage: ONE IN THE MORNING AND ONE IN THE AFTERNOONAND IN THE EVENING
     Dates: start: 20220516
  2. PAXLOVID [Suspect]
     Active Substance: NIRMATRELVIR\RITONAVIR
     Dosage: TWO WHITE ONES IN THE MORNING AND TWO PINK ONES IN THE AFTERNOON
     Dates: start: 202205

REACTIONS (1)
  - Incorrect dose administered [Unknown]

NARRATIVE: CASE EVENT DATE: 20220516
